FAERS Safety Report 10430425 (Version 1)
Quarter: 2014Q3

REPORT INFORMATION
  Report Type: Spontaneous
  Country: JP (occurrence: None)
  Receive Date: 20140902
  Receipt Date: 20140902
  Transmission Date: 20150326
  Serious: Yes (Hospitalization, Other)
  Sender: FDA-Public Use
  Company Number: ADR-2014-01570

PATIENT
  Age: 6 Year
  Sex: Male

DRUGS (1)
  1. GABALON [Suspect]
     Active Substance: BACLOFEN
     Indication: CEREBRAL PALSY

REACTIONS (10)
  - Muscle spasticity [None]
  - Myotonia [None]
  - Muscle tightness [None]
  - Muscle spasms [None]
  - Underdose [None]
  - C-reactive protein increased [None]
  - Akathisia [None]
  - Pyrexia [None]
  - Device dislocation [None]
  - No therapeutic response [None]

NARRATIVE: CASE EVENT DATE: 20140322
